FAERS Safety Report 15124868 (Version 1)
Quarter: 2018Q3

REPORT INFORMATION
  Report Type: Spontaneous
  Country: ES (occurrence: ES)
  Receive Date: 20180710
  Receipt Date: 20180710
  Transmission Date: 20181010
  Serious: Yes (Death, Hospitalization)
  Sender: FDA-Public Use
  Company Number: ES-ELI_LILLY_AND_COMPANY-ES201807003726

PATIENT
  Age: 85 Year
  Sex: Female

DRUGS (9)
  1. PIPERACILIN/TAZOBACTAM [Suspect]
     Active Substance: PIPERACILLIN SODIUM\TAZOBACTAM SODIUM
     Indication: PRODUCT USED FOR UNKNOWN INDICATION
     Dosage: 4 G, EVERY 6 HRS
     Route: 065
     Dates: start: 20170312, end: 20170314
  2. OMEPRAZOLE. [Suspect]
     Active Substance: OMEPRAZOLE
     Indication: PRODUCT USED FOR UNKNOWN INDICATION
     Dosage: 20 MG, DAILY
     Route: 065
     Dates: start: 20170313, end: 20170314
  3. PARACETAMOL [Suspect]
     Active Substance: ACETAMINOPHEN
     Indication: PRODUCT USED FOR UNKNOWN INDICATION
     Dosage: 1 G, EVERY 8 HRS
     Route: 065
     Dates: start: 20170312, end: 20170314
  4. RISPERIDONA [Concomitant]
     Active Substance: RISPERIDONE
     Dosage: 0.5 MG, UNKNOWN
     Route: 065
     Dates: start: 20170312, end: 20170313
  5. PREGABALINA [Concomitant]
     Active Substance: PREGABALIN
     Dosage: 75 MG, BID
     Route: 065
     Dates: start: 20170312, end: 20170313
  6. OLANZAPINE. [Suspect]
     Active Substance: OLANZAPINE
     Indication: PRODUCT USED FOR UNKNOWN INDICATION
     Dosage: 2.5 MG, OTHER
     Route: 065
     Dates: start: 20170312, end: 20170314
  7. QUETIAPINA                         /01270902/ [Concomitant]
     Active Substance: QUETIAPINE FUMARATE
     Dosage: 50 MG, BID
     Route: 065
     Dates: start: 20170312, end: 20170313
  8. FENTANIL [Concomitant]
     Active Substance: FENTANYL
     Dosage: 1 DF, UNKNOWN
     Route: 062
     Dates: start: 20170312, end: 20170316
  9. BEMIPARIN [Concomitant]
     Active Substance: BEMIPARIN
     Dosage: 7500 IU, DAILY
     Route: 065
     Dates: start: 20170312, end: 20170313

REACTIONS (1)
  - Hepatic failure [Fatal]

NARRATIVE: CASE EVENT DATE: 20170313
